FAERS Safety Report 10197368 (Version 2)
Quarter: 2014Q2

REPORT INFORMATION
  Report Type: Spontaneous
  Country: US (occurrence: US)
  Receive Date: 20140527
  Receipt Date: 20140609
  Transmission Date: 20141212
  Serious: Yes (Hospitalization)
  Sender: FDA-Public Use
  Company Number: US-BAXTER-2014BAX026415

PATIENT
  Sex: Male

DRUGS (6)
  1. DIANEAL LOW CALCIUM [Suspect]
     Indication: RENAL FAILURE CHRONIC
     Route: 033
     Dates: start: 201208, end: 201403
  2. DIANEAL LOW CALCIUM [Suspect]
     Route: 033
     Dates: start: 201404
  3. DIANEAL LOW CALCIUM [Suspect]
     Indication: RENAL FAILURE CHRONIC
     Route: 033
     Dates: start: 201208, end: 201403
  4. DIANEAL LOW CALCIUM [Suspect]
     Route: 033
     Dates: start: 201404
  5. DIANEAL LOW CALCIUM [Suspect]
     Indication: RENAL FAILURE CHRONIC
     Route: 033
     Dates: start: 201208, end: 201403
  6. DIANEAL LOW CALCIUM [Suspect]
     Route: 033
     Dates: start: 201404

REACTIONS (2)
  - Haemoglobin decreased [Recovered/Resolved]
  - Chest pain [Recovered/Resolved]
